FAERS Safety Report 18572760 (Version 1)
Quarter: 2020Q4

REPORT INFORMATION
  Report Type: Spontaneous
  Country: CG (occurrence: CG)
  Receive Date: 20201202
  Receipt Date: 20201202
  Transmission Date: 20210114
  Serious: No
  Sender: FDA-Public Use
  Company Number: CG-LUPIN PHARMACEUTICALS INC.-2020-08103

PATIENT

DRUGS (9)
  1. AMIKACIN. [Suspect]
     Active Substance: AMIKACIN
     Indication: TUBERCULOSIS
     Dosage: UNK (4-MONTH INTENSIVE PHASE THERAPY)
     Route: 048
  2. CLOFAZIMINE [Suspect]
     Active Substance: CLOFAZIMINE
     Dosage: UNK (14-MONTH CONTINUATION PHASE THERAPY)
     Route: 048
  3. PARA-AMINOSALICYLIC ACID [Suspect]
     Active Substance: AMINOSALICYLIC ACID
     Indication: TUBERCULOSIS
     Dosage: UNK (6-MONTH INTENSIVE PHASE THERAPY)
     Route: 048
  4. PYRAZINAMIDE. [Suspect]
     Active Substance: PYRAZINAMIDE
     Indication: TUBERCULOSIS
     Dosage: UNK (6-MONTH INTENSIVE PHASE THERAPY)
     Route: 048
  5. BEDAQUILINE [Suspect]
     Active Substance: BEDAQUILINE
     Indication: TUBERCULOSIS
     Dosage: UNK (6-MONTH INTENSIVE PHASE THERAPY)
     Route: 048
  6. LINEZOLID. [Suspect]
     Active Substance: LINEZOLID
     Dosage: UNK (14-MONTH CONTINUATION PHASE THERAPY)
     Route: 048
  7. CLOFAZIMINE [Suspect]
     Active Substance: CLOFAZIMINE
     Indication: TUBERCULOSIS
     Dosage: UNK (6-MONTH INTENSIVE PHASE THERAPY)
     Route: 048
  8. PARA-AMINOSALICYLIC ACID [Suspect]
     Active Substance: AMINOSALICYLIC ACID
     Dosage: UNK (14-MONTH CONTINUATION PHASE THERAPY)
     Route: 048
  9. LINEZOLID. [Suspect]
     Active Substance: LINEZOLID
     Indication: TUBERCULOSIS
     Dosage: UNK (6-MONTH INTENSIVE PHASE THERAPY)
     Route: 048

REACTIONS (1)
  - Nausea [Unknown]
